FAERS Safety Report 5281304-X (Version None)
Quarter: 2007Q1

REPORT INFORMATION
  Report Type: 
  Country: None (occurrence: None)
  Receive Date: 20061221
  Receipt Date: 20040503
  Transmission Date: 20070707
  Serious: No
  Sender: FDA-Public Use
  Company Number: 2004UW09957

PATIENT

DRUGS (2)
  1. SENSORCAINE [Suspect]
     Indication: ANAESTHESIA
     Route: 037
     Dates: start: 20040401
  2. SENSORCAINE [Suspect]
     Route: 037

REACTIONS (2)
  - ANAESTHETIC COMPLICATION [None]
  - RESPIRATORY DISTRESS [None]
